FAERS Safety Report 13642675 (Version 10)
Quarter: 2019Q2

REPORT INFORMATION
  Report Type: Report from Study
  Country: CA (occurrence: CA)
  Receive Date: 20170612
  Receipt Date: 20190515
  Transmission Date: 20190711
  Serious: Yes (Death, Hospitalization, Other)
  Sender: FDA-Public Use
  Company Number: PHHY2017CA082287

PATIENT
  Age: 73 Year
  Sex: Female

DRUGS (3)
  1. SANDOSTATIN LAR DEPOT [Suspect]
     Active Substance: OCTREOTIDE ACETATE
     Indication: ACROMEGALY
     Dosage: 20 MG, QMO (EVERY 4 WEEKS)
     Route: 030
     Dates: start: 20151124
  2. SYNTHROID [Concomitant]
     Active Substance: LEVOTHYROXINE SODIUM
     Indication: PRODUCT USED FOR UNKNOWN INDICATION
     Dosage: 75 UG, QD
     Route: 048
  3. SANDOSTATIN [Suspect]
     Active Substance: OCTREOTIDE ACETATE
     Indication: ACROMEGALY
     Dosage: 100 UG, TID
     Route: 058
     Dates: start: 20161018

REACTIONS (15)
  - Seizure [Recovering/Resolving]
  - Vaginal haemorrhage [Unknown]
  - Vaginal prolapse [Unknown]
  - Bladder prolapse [Unknown]
  - Gastrointestinal disorder [Unknown]
  - Mobility decreased [Unknown]
  - Rectal haemorrhage [Unknown]
  - Blood pressure systolic increased [Unknown]
  - Aphasia [Unknown]
  - Blood glucose increased [Unknown]
  - Acromegaly [Unknown]
  - Pulmonary embolism [Fatal]
  - Dementia Alzheimer^s type [Unknown]
  - Blood pressure diastolic decreased [Unknown]
  - Pain [Unknown]

NARRATIVE: CASE EVENT DATE: 20171107
